FAERS Safety Report 6607630-7 (Version None)
Quarter: 2010Q1

REPORT INFORMATION
  Report Type: 
  Country: None (occurrence: None)
  Receive Date: 20100217
  Receipt Date: 20100204
  Transmission Date: 20100710
  Serious: Yes (Other)
  Sender: FDA-Public Use
  Company Number: AECAN201000043

PATIENT
  Sex: Female

DRUGS (2)
  1. GAMUNEX [Suspect]
     Indication: IDIOPATHIC THROMBOCYTOPENIC PURPURA
     Dosage: 80 GM; QD; IV
     Route: 042
     Dates: start: 20090901, end: 20091101
  2. GAMUNEX [Suspect]

REACTIONS (3)
  - ANXIETY [None]
  - DRUG EXPOSURE DURING PREGNANCY [None]
  - TREPONEMA TEST FALSE POSITIVE [None]
